FAERS Safety Report 10215223 (Version 1)
Quarter: 2014Q2

REPORT INFORMATION
  Report Type: Spontaneous
  Country: IT (occurrence: IT)
  Receive Date: 20140603
  Receipt Date: 20140603
  Transmission Date: 20141212
  Serious: Yes (Other)
  Sender: FDA-Public Use
  Company Number: PHHY2014IT065893

PATIENT
  Age: 44 Year
  Sex: Female

DRUGS (1)
  1. TRAMADOL [Suspect]
     Dosage: 25 DRP, ONCE/SINGLE
     Route: 048
     Dates: start: 20140519, end: 20140519

REACTIONS (2)
  - Chest discomfort [Recovering/Resolving]
  - Headache [Recovering/Resolving]
